FAERS Safety Report 18810644 (Version 1)
Quarter: 2021Q1

REPORT INFORMATION
  Report Type: Spontaneous
  Country: MA (occurrence: MA)
  Receive Date: 20210129
  Receipt Date: 20210129
  Transmission Date: 20210419
  Serious: Yes (Death, Other)
  Sender: FDA-Public Use
  Company Number: MA-NOVOPROD-781423

PATIENT
  Age: 50 Year
  Sex: Male

DRUGS (5)
  1. TRANEXAMIC [Concomitant]
     Active Substance: TRANEXAMIC ACID
     Indication: HAEMOTHORAX
  2. NORADRENALIN [NOREPINEPHRINE] [Concomitant]
     Active Substance: NOREPINEPHRINE
     Indication: GASTROINTESTINAL HAEMORRHAGE
     Dosage: 2 ML/H
     Route: 065
  3. NOVOSEVEN RT [Suspect]
     Active Substance: COAGULATION FACTOR VIIA RECOMBINANT HUMAN
     Indication: PLASMIN INHIBITOR DECREASED
     Dosage: 6 MG
     Route: 065
  4. NOVOSEVEN RT [Suspect]
     Active Substance: COAGULATION FACTOR VIIA RECOMBINANT HUMAN
     Indication: GASTROINTESTINAL HAEMORRHAGE
  5. TRANEXAMIC [Concomitant]
     Active Substance: TRANEXAMIC ACID
     Indication: HAEMATEMESIS
     Dosage: EXACYL 1 G/8 H

REACTIONS (5)
  - Circulatory collapse [Fatal]
  - Drug ineffective [Fatal]
  - Off label use [Unknown]
  - Cardiac arrest [Fatal]
  - Haemorrhage [Fatal]
